FAERS Safety Report 4510340-3 (Version None)
Quarter: 2004Q4

REPORT INFORMATION
  Report Type: 
  Country: None (occurrence: None)
  Receive Date: 20041124
  Receipt Date: 20041111
  Transmission Date: 20050328
  Serious: Yes (Hospitalization)
  Sender: FDA-Public Use
  Company Number: GB-AMGEN-UK099209

PATIENT
  Sex: Female
  Weight: 76 kg

DRUGS (12)
  1. KINERET [Suspect]
     Indication: PRE-EXISTING DISEASE
     Route: 065
     Dates: start: 20021128, end: 20040201
  2. RABEPRAZOLE SODIUM [Concomitant]
  3. HYPROMELLOSE [Concomitant]
  4. AZATHIOPRINE [Concomitant]
  5. AZITHROMYCIN [Concomitant]
  6. SALBUTAMOL [Concomitant]
  7. FOSAMAX [Concomitant]
  8. DOMPERIDONE [Concomitant]
  9. ASPIRIN [Concomitant]
  10. PREDNISOLONE [Concomitant]
  11. CYCLOPHOSPHAMIDE [Concomitant]
  12. CONJUGATED ESTROGEN [Concomitant]

REACTIONS (3)
  - CHEST PAIN [None]
  - CHOLELITHIASIS [None]
  - DYSPNOEA [None]
